FAERS Safety Report 18282860 (Version 3)
Quarter: 2021Q2

REPORT INFORMATION
  Report Type: Spontaneous
  Country: US (occurrence: US)
  Receive Date: 20200918
  Receipt Date: 20210621
  Transmission Date: 20210717
  Serious: Yes (Death, Other)
  Sender: FDA-Public Use
  Company Number: US-SA-2020SA253736

PATIENT

DRUGS (1)
  1. ZANTAC [Suspect]
     Active Substance: RANITIDINE HYDROCHLORIDE
     Dosage: UNK
     Route: 048

REACTIONS (4)
  - Emotional distress [Unknown]
  - Anxiety [Unknown]
  - Hepatic cancer [Fatal]
  - Pain [Unknown]

NARRATIVE: CASE EVENT DATE: 2016
